FAERS Safety Report 4910486-1 (Version None)
Quarter: 2006Q1

REPORT INFORMATION
  Report Type: 
  Country: None (occurrence: None)
  Receive Date: 20060209
  Receipt Date: 20060123
  Transmission Date: 20060701
  Serious: Yes (Hospitalization)
  Sender: FDA-Public Use
  Company Number: CA200512003838

PATIENT
  Age: 93 Year
  Sex: Male

DRUGS (2)
  1. FORTEO [Suspect]
     Indication: OSTEOPOROSIS
     Dosage: 20  UG, DAILY (1/D)
     Dates: start: 20050406
  2. FORTEO [Concomitant]

REACTIONS (5)
  - EXERCISE LACK OF [None]
  - FALL [None]
  - HIP FRACTURE [None]
  - MOBILITY DECREASED [None]
  - PULMONARY EMBOLISM [None]
